FAERS Safety Report 8861487 (Version 1)
Quarter: 2012Q4

REPORT INFORMATION
  Report Type: 
  Country: US (occurrence: US)
  Receive Date: 20121025
  Receipt Date: 20121025
  Transmission Date: 20130627
  Serious: No
  Sender: FDA-Public Use
  Company Number: US-AMGEN-USASP2012014483

PATIENT
  Age: 49 Year
  Sex: Male

DRUGS (7)
  1. ENBREL [Suspect]
     Indication: PRODUCT USED FOR UNKNOWN INDICATION
     Dosage: 50 mg, 2 times/wk
     Route: 058
  2. HYDROCHLOROTH [Concomitant]
     Dosage: 12.5 mg, UNK
  3. ATENOLOL [Concomitant]
     Dosage: 50 mg, UNK
  4. LACTULOSE [Concomitant]
     Dosage: UNK
  5. OXYCODONE [Concomitant]
     Dosage: 10 mg, UNK
  6. OXYCONTIN [Concomitant]
     Dosage: 20 mg, UNK
  7. OMEPRAZOLE [Concomitant]
     Dosage: 20 mg, UNK

REACTIONS (1)
  - Drug ineffective [Unknown]
